FAERS Safety Report 4927332-2 (Version None)
Quarter: 2006Q1

REPORT INFORMATION
  Report Type: 
  Country: None (occurrence: None)
  Receive Date: 20060228
  Receipt Date: 20050802
  Transmission Date: 20060701
  Serious: No
  Sender: FDA-Public Use
  Company Number: A0569157A

PATIENT
  Sex: Female

DRUGS (1)
  1. IMITREX [Suspect]
     Indication: DRUG USE FOR UNKNOWN INDICATION
     Route: 065

REACTIONS (1)
  - MIGRAINE [None]
